FAERS Safety Report 20407081 (Version 3)
Quarter: 2022Q2

REPORT INFORMATION
  Report Type: Spontaneous
  Country: US (occurrence: US)
  Receive Date: 20220131
  Receipt Date: 20220620
  Transmission Date: 20220720
  Serious: Yes (Life-Threatening, Hospitalization, Other)
  Sender: FDA-Public Use
  Company Number: US-PURDUE-USA-2022-0290978

PATIENT
  Age: 35 Year
  Sex: Male

DRUGS (1)
  1. OXYCODONE HYDROCHLORIDE [Suspect]
     Active Substance: OXYCODONE HYDROCHLORIDE
     Indication: Product used for unknown indication
     Dosage: UNKNOWN
     Route: 042

REACTIONS (14)
  - Disseminated intravascular coagulation [Recovering/Resolving]
  - Pulmonary alveolar haemorrhage [Unknown]
  - Acute kidney injury [Unknown]
  - Pulseless electrical activity [Recovered/Resolved]
  - Hepatic function abnormal [Unknown]
  - Sepsis [Unknown]
  - Cardiac arrest [Recovered/Resolved]
  - Drug abuse [Unknown]
  - Haemorrhage [Recovering/Resolving]
  - Incorrect route of product administration [Unknown]
  - Ischaemic hepatitis [Unknown]
  - Peripheral swelling [Unknown]
  - Pulmonary granuloma [Unknown]
  - Drug abuser [Unknown]
